FAERS Safety Report 4277433-X (Version None)
Quarter: 2004Q1

REPORT INFORMATION
  Report Type: 
  Country: None (occurrence: None)
  Receive Date: 20040122
  Receipt Date: 20040116
  Transmission Date: 20041129
  Serious: Yes (Death, Life-Threatening, Other)
  Sender: FDA-Public Use
  Company Number: GB-BRISTOL-MYERS SQUIBB COMPANY-12479333

PATIENT
  Age: 54 Year
  Sex: Male
  Weight: 76 kg

DRUGS (4)
  1. SUSTIVA [Suspect]
     Indication: HIV INFECTION
     Route: 048
     Dates: start: 20031201, end: 20031209
  2. LOPINAVIR [Concomitant]
     Dosage: DOSAGE FORM: CAPSULE
     Dates: start: 20031201
  3. LAMIVUDINE [Concomitant]
     Dates: start: 19980201
  4. TENOFOVIR DISOPROXIL FUMARATE [Concomitant]
     Dates: start: 20020201

REACTIONS (3)
  - DEPRESSION [None]
  - SUDDEN DEATH [None]
  - SUICIDAL IDEATION [None]
